FAERS Safety Report 7625743-8 (Version None)
Quarter: 2011Q3

REPORT INFORMATION
  Report Type: 
  Country: None (occurrence: None)
  Receive Date: 20110713
  Receipt Date: 20110628
  Transmission Date: 20111222
  Serious: Yes (Death)
  Sender: FDA-Public Use
  Company Number: AUR-APL-2011-03895

PATIENT
  Age: 46 Year
  Sex: Male

DRUGS (4)
  1. DILTIAZEM [Suspect]
     Indication: PRODUCT USED FOR UNKNOWN INDICATION
     Dosage: (240 MG) , ORAL
     Route: 048
     Dates: end: 20070101
  2. LABETALOL HCL [Suspect]
     Indication: PRODUCT USED FOR UNKNOWN INDICATION
     Dosage: (400 MG), ORAL
     Route: 048
     Dates: end: 20070101
  3. AMLODIPINE [Suspect]
     Indication: PRODUCT USED FOR UNKNOWN INDICATION
     Dosage: (10 MG), ORAL
     Route: 048
     Dates: end: 20070101
  4. LORATADINE [Suspect]
     Indication: PRODUCT USED FOR UNKNOWN INDICATION
     Dosage: ORAL
     Route: 048
     Dates: end: 20070101

REACTIONS (16)
  - NAUSEA [None]
  - BLOOD LACTIC ACID INCREASED [None]
  - CARDIAC ARREST [None]
  - INCORRECT DOSE ADMINISTERED [None]
  - BLOOD GLUCOSE INCREASED [None]
  - DRUG INTERACTION [None]
  - TOXICITY TO VARIOUS AGENTS [None]
  - MEDICATION ERROR [None]
  - ABDOMINAL PAIN [None]
  - CORONARY ARTERY DISEASE [None]
  - BLOOD BICARBONATE DECREASED [None]
  - BRADYCARDIA [None]
  - HYPOTENSION [None]
  - TREATMENT NONCOMPLIANCE [None]
  - RESPIRATORY RATE INCREASED [None]
  - BLOOD CREATININE INCREASED [None]
